FAERS Safety Report 5876469-2 (Version None)
Quarter: 2008Q3

REPORT INFORMATION
  Report Type: 
  Country: None (occurrence: None)
  Receive Date: 20080910
  Receipt Date: 20080904
  Transmission Date: 20090109
  Serious: Yes (Other)
  Sender: FDA-Public Use
  Company Number: A0745932A

PATIENT
  Age: 47 Year
  Sex: Female

DRUGS (4)
  1. LAMICTAL [Suspect]
     Indication: BIPOLAR DISORDER
     Dosage: 25MG TWICE PER DAY
     Route: 048
     Dates: start: 20080601
  2. MULTI-VITAMIN [Concomitant]
  3. ALPRAZOLAM [Concomitant]
  4. TEMAZEPAM [Concomitant]

REACTIONS (3)
  - ANXIETY [None]
  - HEART RATE INCREASED [None]
  - MYOCARDIAL INFARCTION [None]
